FAERS Safety Report 7247892-9 (Version None)
Quarter: 2011Q1

REPORT INFORMATION
  Report Type: 
  Country: None (occurrence: None)
  Receive Date: 20110127
  Receipt Date: 20110120
  Transmission Date: 20110831
  Serious: No
  Sender: FDA-Public Use
  Company Number: US-PFIZER INC-2011015016

PATIENT
  Age: 70 Year
  Sex: Male
  Weight: 118 kg

DRUGS (14)
  1. VITAMIN D [Concomitant]
  2. SINEMET [Concomitant]
     Dosage: 25/100
  3. GABAPENTIN [Suspect]
     Dosage: 100 MG, 3X/DAY
  4. LIPITOR [Concomitant]
     Dosage: 10 MG, UNK
  5. ASA [Concomitant]
  6. COMTAN [Concomitant]
     Dosage: 200 MG, UNK
  7. METFORMIN [Concomitant]
     Dosage: 500 MG, UNK
  8. LISINOPRIL [Concomitant]
     Dosage: 2.5 MG, UNK
  9. FISH OIL [Concomitant]
  10. FINASTERIDE [Concomitant]
     Dosage: 5 MG, UNK
  11. GABAPENTIN [Suspect]
     Dosage: 200 MG, 3X/DAY
  12. BROMOCRIPTINE [Concomitant]
     Dosage: 2.5 MG, UNK
  13. NIACIN [Concomitant]
  14. VITAMIN E [Concomitant]

REACTIONS (2)
  - FALL [None]
  - DIZZINESS [None]
